FAERS Safety Report 20204272 (Version 1)
Quarter: 2021Q4

REPORT INFORMATION
  Report Type: Other
  Country: CA (occurrence: CA)
  Receive Date: 20211220
  Receipt Date: 20211220
  Transmission Date: 20220303
  Serious: Yes (Other)
  Sender: FDA-Public Use
  Company Number: CA-APOTEX-2021AP046644

PATIENT
  Age: 83 Year
  Sex: Male

DRUGS (1)
  1. METFORMIN [Suspect]
     Active Substance: METFORMIN HYDROCHLORIDE
     Indication: Blood glucose increased
     Dosage: 500 MILLIGRAM, QD
     Route: 065

REACTIONS (3)
  - Anger [Unknown]
  - Mood swings [Unknown]
  - Paranoia [Unknown]
